FAERS Safety Report 20582010 (Version 1)
Quarter: 2022Q1

REPORT INFORMATION
  Report Type: Spontaneous
  Country: US (occurrence: None)
  Receive Date: 20220310
  Receipt Date: 20220310
  Transmission Date: 20220423
  Serious: Yes (Hospitalization)
  Sender: FDA-Public Use
  Company Number: None

PATIENT
  Age: 73 Year
  Sex: Male
  Weight: 69 kg

DRUGS (1)
  1. WARFARIN SODIUM [Suspect]
     Active Substance: WARFARIN SODIUM
     Dates: start: 20040427

REACTIONS (4)
  - Anaemia [None]
  - Gastric haemorrhage [None]
  - International normalised ratio abnormal [None]
  - Ulcer haemorrhage [None]

NARRATIVE: CASE EVENT DATE: 20190916
